FAERS Safety Report 5918497-4 (Version None)
Quarter: 2008Q4

REPORT INFORMATION
  Report Type: 
  Country: None (occurrence: None)
  Receive Date: 20081014
  Receipt Date: 20081014
  Transmission Date: 20090506
  Serious: Yes (Hospitalization)
  Sender: FDA-Public Use
  Company Number: None

PATIENT
  Age: 56 Year
  Sex: Male
  Weight: 83.4 kg

DRUGS (6)
  1. BEVACIZUMAB (GENENTECH, INC.) [Suspect]
     Indication: GLIOBLASTOMA MULTIFORME
     Dosage: 834 MG Q2WKS IV
     Route: 042
     Dates: start: 20080806, end: 20080820
  2. TEMOZOLOMIDE (SCHERING-PLOUGH RESEARCH) [Suspect]
     Indication: GLIOBLASTOMA MULTIFORME
     Dosage: 410 MG DAYS 1-5 PO
     Route: 048
     Dates: start: 20080806, end: 20080810
  3. ZANTAC [Concomitant]
  4. DECADRON [Concomitant]
  5. AMBIEN [Concomitant]
  6. CELEXA [Concomitant]

REACTIONS (2)
  - GRAND MAL CONVULSION [None]
  - HAEMORRHAGE [None]
